FAERS Safety Report 6476480-7 (Version None)
Quarter: 2009Q4

REPORT INFORMATION
  Report Type: 
  Country: None (occurrence: None)
  Receive Date: 20091207
  Receipt Date: 20091201
  Transmission Date: 20100525
  Serious: Yes (Life-Threatening)
  Sender: FDA-Public Use
  Company Number: US-CUBIST-2009S1000538

PATIENT
  Age: 60 Year
  Sex: Female
  Weight: 70.8 kg

DRUGS (8)
  1. CUBICIN [Suspect]
     Indication: ENDOCARDITIS
     Dosage: DOSE UNIT:8 UNKNOWN
     Route: 042
  2. CUBICIN [Suspect]
     Indication: DEVICE RELATED INFECTION
     Dosage: DOSE UNIT:8 UNKNOWN
     Route: 042
  3. CUBICIN [Suspect]
     Indication: ENTEROCOCCAL INFECTION
     Dosage: DOSE UNIT:8 UNKNOWN
     Route: 042
  4. CUBICIN [Suspect]
     Indication: OFF LABEL USE
     Dosage: DOSE UNIT:8 UNKNOWN
     Route: 042
  5. VANCOMYCIN [Concomitant]
     Indication: DRUG USE FOR UNKNOWN INDICATION
  6. VANCOMYCIN [Concomitant]
  7. MEROPENEM [Concomitant]
     Indication: DRUG USE FOR UNKNOWN INDICATION
  8. CORTICOSTEROID NOS [Concomitant]
     Indication: DRUG USE FOR UNKNOWN INDICATION

REACTIONS (2)
  - CONVULSION [None]
  - HYPONATRAEMIA [None]
